FAERS Safety Report 8004481-6 (Version None)
Quarter: 2011Q4

REPORT INFORMATION
  Report Type: 
  Country: None (occurrence: None)
  Receive Date: 20111221
  Receipt Date: 20111221
  Transmission Date: 20120403
  Serious: Yes (Hospitalization)
  Sender: FDA-Public Use
  Company Number: None

PATIENT
  Sex: Female
  Weight: 55.8 kg

DRUGS (3)
  1. CYTARABINE [Suspect]
     Dosage: 10110 MG
  2. MITOXANTRONE HYDROCHLORIDE [Suspect]
     Dosage: 34 MG
  3. TRETINOIN [Suspect]
     Dosage: 160 MG

REACTIONS (2)
  - FEBRILE NEUTROPENIA [None]
  - BLOOD CULTURE POSITIVE [None]
